FAERS Safety Report 8073119-4 (Version None)
Quarter: 2012Q1

REPORT INFORMATION
  Report Type: 
  Country: None (occurrence: None)
  Receive Date: 20120126
  Receipt Date: 20120111
  Transmission Date: 20120608
  Serious: Yes (Other)
  Sender: FDA-Public Use
  Company Number: CA-JNJFOC-20120110427

PATIENT
  Sex: Female
  Weight: 68.04 kg

DRUGS (3)
  1. EVISTA [Concomitant]
     Route: 048
  2. PURINETHOL [Concomitant]
     Route: 048
  3. REMICADE [Suspect]
     Indication: CROHN'S DISEASE
     Route: 042
     Dates: start: 20060101

REACTIONS (1)
  - CHOLELITHIASIS [None]
